FAERS Safety Report 8170860-X (Version None)
Quarter: 2012Q1

REPORT INFORMATION
  Report Type: 
  Country: None (occurrence: None)
  Receive Date: 20120104
  Receipt Date: 20111207
  Transmission Date: 20120608
  Serious: No
  Sender: FDA-Public Use
  Company Number: 2011HGS-002937

PATIENT
  Age: 48 Year
  Sex: Female
  Weight: 104.3273 kg

DRUGS (13)
  1. ATENOLOL [Concomitant]
  2. FIORICET(AXOTAL /OLD FORM/)(CAFFEINE, BUTALBITAL, PARACETAMOL) [Concomitant]
  3. LORAZEPAM [Concomitant]
  4. PREDNISONE [Concomitant]
  5. PLAVIX [Concomitant]
  6. LASIX(LASIX /SCH/) (FUROSEMIDE, FUROSEMIDE SODIUM) [Concomitant]
  7. PLAQUENIL(HYDROXYCHLOROQUINE SULFATE)(HYDROXYCHLOROQUINE SULFATE [Concomitant]
  8. GABAPENTIN [Concomitant]
  9. ESTRADIOL [Concomitant]
  10. LOSARTAN(LOSARTAN) (LOSARTAN) [Concomitant]
  11. LORTAB(VICODIN) (PARACETAMOL, HYDROCODONE BITARTRATE [Concomitant]
  12. BENLYSTA [Suspect]
     Indication: SYSTEMIC LUPUS ERYTHEMATOSUS
     Dosage: 1 IN 28 D, INTRAVENOUS DRIP
     Route: 041
     Dates: start: 20111201
  13. XOPENEX(LEVOSALBUTAMOL)(LEVOSALBUTAMOL) [Concomitant]

REACTIONS (4)
  - PRURITUS [None]
  - HEADACHE [None]
  - ERYTHEMA [None]
  - RASH [None]
